FAERS Safety Report 5287697-1 (Version None)
Quarter: 2007Q2

REPORT INFORMATION
  Report Type: 
  Country: None (occurrence: None)
  Receive Date: 20070405
  Receipt Date: 20070330
  Transmission Date: 20071010
  Serious: Yes (Hospitalization, Other)
  Sender: FDA-Public Use
  Company Number: JP-BRACCO-BRO-011617

PATIENT
  Age: 4 Year
  Sex: Male
  Weight: 18 kg

DRUGS (2)
  1. IOPAMIRON [Suspect]
     Route: 050
     Dates: start: 20070327, end: 20070327
  2. IOPAMIRON [Suspect]
     Indication: COMPUTERISED TOMOGRAM
     Route: 050
     Dates: start: 20070327, end: 20070327

REACTIONS (2)
  - HAEMATURIA [None]
  - HAEMOLYTIC ANAEMIA [None]
